FAERS Safety Report 6812623-0 (Version None)
Quarter: 2010Q3

REPORT INFORMATION
  Report Type: 
  Country: None (occurrence: None)
  Receive Date: 20100701
  Receipt Date: 20100624
  Transmission Date: 20110219
  Serious: Yes (Life-Threatening, Hospitalization, Disabling, Other)
  Sender: FDA-Public Use
  Company Number: JP-PFIZER INC-2010075093

PATIENT
  Age: 41 Year
  Sex: Male

DRUGS (4)
  1. CHAMPIX [Suspect]
     Dosage: UNK
     Route: 048
     Dates: start: 20100330, end: 20100608
  2. TAKEPRON [Concomitant]
     Dosage: 1.5 MG, 1X/DAY
     Route: 048
     Dates: start: 20100513
  3. BIOFERMIN R [Concomitant]
     Dosage: UNK
     Route: 048
  4. CRESTOR [Concomitant]
     Dosage: 2.5 MG, 1X/DAY
     Route: 048

REACTIONS (4)
  - DIZZINESS [None]
  - HEAD INJURY [None]
  - HYPOTENSION [None]
  - SYNCOPE [None]
